FAERS Safety Report 11733990 (Version 1)
Quarter: 2015Q4

REPORT INFORMATION
  Report Type: Spontaneous
  Country: US (occurrence: None)
  Receive Date: 20151112
  Receipt Date: 20151112
  Transmission Date: 20160304
  Serious: Yes (Hospitalization)
  Sender: FDA-Public Use
  Company Number: None

PATIENT
  Age: 69 Year
  Sex: Male
  Weight: 83.8 kg

DRUGS (1)
  1. DASABUVIR/OMBITASVIR/PARITAPREVIR/RITONAVIR [Suspect]
     Active Substance: DASABUVIR\OMBITASVIR\PARITAPREVIR\RITONAVIR
     Indication: HEPATITIS C
     Dates: start: 20150218, end: 20150420

REACTIONS (11)
  - Therapy cessation [None]
  - Cough [None]
  - Weight decreased [None]
  - Angina pectoris [None]
  - Vision blurred [None]
  - Rash pruritic [None]
  - Irritability [None]
  - Insomnia [None]
  - Adverse drug reaction [None]
  - Wheezing [None]
  - Hyperglycaemia [None]

NARRATIVE: CASE EVENT DATE: 20150401
